FAERS Safety Report 8836938 (Version 1)
Quarter: 2012Q4

REPORT INFORMATION
  Report Type: 
  Country: JP (occurrence: JP)
  Receive Date: 20121011
  Receipt Date: 20121011
  Transmission Date: 20130627
  Serious: Yes (Other)
  Sender: FDA-Public Use
  Company Number: JP-BRISTOL-MYERS SQUIBB COMPANY-17021924

PATIENT
  Age: 58 Year
  Sex: Female

DRUGS (2)
  1. TAXOL INJ [Suspect]
     Indication: UTERINE CANCER
     Dosage: Therapy duration; 90 days (ongoing)
     Route: 041
  2. PARAPLATIN [Suspect]
     Indication: UTERINE CANCER
     Dosage: Therapy duration; 90 days (ongoing)
     Route: 041

REACTIONS (1)
  - Colitis ulcerative [Recovered/Resolved]
